FAERS Safety Report 19998319 (Version 1)
Quarter: 2021Q4

REPORT INFORMATION
  Report Type: Spontaneous
  Country: US (occurrence: US)
  Receive Date: 20211026
  Receipt Date: 20211026
  Transmission Date: 20220303
  Serious: No
  Sender: FDA-Public Use
  Company Number: US-BRISTOL-MYERS SQUIBB COMPANY-BMS-2021-111588

PATIENT
  Age: 70 Year
  Sex: Male

DRUGS (5)
  1. ELIQUIS [Suspect]
     Active Substance: APIXABAN
     Indication: Pulmonary embolism
     Dosage: 10 MILLIGRAM, BID
     Route: 065
     Dates: start: 20210806
  2. ELIQUIS [Suspect]
     Active Substance: APIXABAN
     Indication: Deep vein thrombosis
     Dosage: 5 MILLIGRAM, BID
     Route: 065
     Dates: start: 202109
  3. COVID-19 VACCINE [Concomitant]
     Indication: COVID-19 immunisation
     Dosage: FIRST SHOT
     Route: 065
     Dates: start: 20201221
  4. COVID-19 VACCINE [Concomitant]
     Dosage: SECOND SHOT
     Route: 065
     Dates: start: 20210110
  5. COVID-19 VACCINE [Concomitant]
     Dosage: BOOSTER DOSE
     Route: 065
     Dates: start: 20211009

REACTIONS (1)
  - Intentional product use issue [Unknown]

NARRATIVE: CASE EVENT DATE: 20210806
